FAERS Safety Report 8404104-8 (Version None)
Quarter: 2012Q2

REPORT INFORMATION
  Report Type: 
  Country: None (occurrence: None)
  Receive Date: 20120601
  Receipt Date: 20120530
  Transmission Date: 20120825
  Serious: Yes (Life-Threatening, Other)
  Sender: FDA-Public Use
  Company Number: PHHY2012GB046626

PATIENT
  Age: 56 Year
  Sex: Male

DRUGS (2)
  1. CO-DYDRAMOL [Suspect]
     Dosage: 20 DF, UNK
  2. TRAMADOL HCL [Suspect]
     Dosage: 60 DF, UNK

REACTIONS (7)
  - INTENTIONAL OVERDOSE [None]
  - SOMNOLENCE [None]
  - RESPIRATORY FAILURE [None]
  - MIOSIS [None]
  - INAPPROPRIATE ANTIDIURETIC HORMONE SECRETION [None]
  - AGITATION [None]
  - HYPONATRAEMIA [None]
